FAERS Safety Report 13274851 (Version 1)
Quarter: 2017Q1

REPORT INFORMATION
  Report Type: Spontaneous
  Country: AU (occurrence: AU)
  Receive Date: 20170227
  Receipt Date: 20170227
  Transmission Date: 20170428
  Serious: Yes (Other)
  Sender: FDA-Public Use
  Company Number: AU-009507513-1702AUS011583

PATIENT
  Age: 42 Year
  Sex: Female

DRUGS (2)
  1. CELESTONE [Suspect]
     Active Substance: BETAMETHASONE
     Indication: ECZEMA
     Dosage: ON BODY
     Route: 003
     Dates: start: 2007, end: 2014
  2. ADVANTAN [Suspect]
     Active Substance: CORTICOSTEROID NOS
     Indication: ECZEMA
     Dosage: ON NIPPLES
     Route: 003
     Dates: start: 2007, end: 2014

REACTIONS (17)
  - Eczema herpeticum [Unknown]
  - Dyspepsia [Unknown]
  - Alopecia [Unknown]
  - Skin fissures [Recovering/Resolving]
  - Eczema [Recovering/Resolving]
  - Adrenal disorder [Unknown]
  - Depression [Unknown]
  - Madarosis [Unknown]
  - Dry skin [Recovering/Resolving]
  - Steroid withdrawal syndrome [Unknown]
  - Eye disorder [Unknown]
  - Libido decreased [Unknown]
  - Drug dependence [Unknown]
  - Asthenia [Unknown]
  - Pterygium [Unknown]
  - Apathy [Unknown]
  - Rash erythematous [Recovering/Resolving]
